FAERS Safety Report 8124239-7 (Version None)
Quarter: 2012Q1

REPORT INFORMATION
  Report Type: 
  Country: None (occurrence: None)
  Receive Date: 20120209
  Receipt Date: 20120130
  Transmission Date: 20120608
  Serious: Yes (Hospitalization)
  Sender: FDA-Public Use
  Company Number: US-BRISTOL-MYERS SQUIBB COMPANY-16374688

PATIENT
  Age: 80 Year
  Sex: Male
  Weight: 69 kg

DRUGS (1)
  1. ERBITUX [Suspect]
     Indication: NEOPLASM MALIGNANT
     Dosage: 3 WEEKS ON AND 1WEEK OFF FOR A BREAK,ABOUT FOUR MONTHS AGO

REACTIONS (3)
  - RASH [None]
  - PANCREATITIS [None]
  - WEIGHT DECREASED [None]
